FAERS Safety Report 6875734-X (Version None)
Quarter: 2010Q3

REPORT INFORMATION
  Report Type: 
  Country: None (occurrence: None)
  Receive Date: 20100727
  Receipt Date: 20070808
  Transmission Date: 20110219
  Serious: Yes (Hospitalization, Other)
  Sender: FDA-Public Use
  Company Number: US-PFIZER INC-2006086373

PATIENT
  Sex: Male
  Weight: 88.5 kg

DRUGS (3)
  1. CELEBREX [Suspect]
     Indication: PAIN IN EXTREMITY
     Dates: start: 20040528
  2. CELEBREX [Suspect]
     Indication: BURNING SENSATION
  3. CELEBREX [Suspect]
     Indication: BACK PAIN

REACTIONS (1)
  - MYOCARDIAL INFARCTION [None]
